FAERS Safety Report 8816021 (Version 2)
Quarter: 2013Q2

REPORT INFORMATION
  Report Type: Spontaneous
  Country: GB (occurrence: GB)
  Receive Date: 20120929
  Receipt Date: 20130417
  Transmission Date: 20140414
  Serious: Yes (Other)
  Sender: FDA-Public Use
  Company Number: GB-009507513-1111GBR00126

PATIENT
  Sex: Male

DRUGS (3)
  1. CRIXIVAN [Suspect]
     Dates: start: 1998, end: 1998
  2. ACETAMINOPHEN (+) DIHYDROCODEINE BITARTRATE [Concomitant]
     Dosage: 1 G, Q4H
  3. PREGABALIN [Concomitant]
     Dosage: 150 MG, UNK

REACTIONS (4)
  - Pain [Not Recovered/Not Resolved]
  - Hydronephrosis [Unknown]
  - Headache [Unknown]
  - Hallucination [Unknown]
